FAERS Safety Report 9690396 (Version 1)
Quarter: 2013Q4

REPORT INFORMATION
  Report Type: Spontaneous
  Country: FR (occurrence: None)
  Receive Date: 20131113
  Receipt Date: 20131113
  Transmission Date: 20140711
  Serious: Yes (Hospitalization)
  Sender: FDA-Public Use
  Company Number: SYM-2013-12509

PATIENT
  Age: 25 Year
  Sex: Male

DRUGS (5)
  1. FLAGYL [Suspect]
     Indication: PRODUCT USED FOR UNKNOWN INDICATION
     Dosage: 750 MG, ORAL
     Route: 048
     Dates: start: 200606, end: 20130907
  2. DEDROGYL (CALCIFEDIOL) (CALCIFEDIOL) [Concomitant]
  3. URSOLVAN (URSODEOXYCHOLIC ACID) (URSODEOXYCHOLIC ACID) [Concomitant]
  4. LEVOCARNIL (LEVOCARNITINE) (LEVOCARNITINE)? [Concomitant]
  5. ARANESP (DARBEPOETIN ALFA) (DARBEPOETIN ALFA)? [Concomitant]

REACTIONS (2)
  - Leukopenia [None]
  - Thrombocytopenia [None]
